FAERS Safety Report 13666448 (Version 1)
Quarter: 2017Q2

REPORT INFORMATION
  Report Type: Spontaneous
  Country: US (occurrence: US)
  Receive Date: 20170619
  Receipt Date: 20170619
  Transmission Date: 20170830
  Serious: No
  Sender: FDA-Public Use
  Company Number: US-ROCHE-1321904

PATIENT
  Sex: Male

DRUGS (4)
  1. NATURE-THROID [Concomitant]
     Active Substance: THYROID, PORCINE
  2. COUMADIN [Concomitant]
     Active Substance: WARFARIN SODIUM
  3. XELODA [Suspect]
     Active Substance: CAPECITABINE
     Indication: COLON CANCER
     Dosage: 4 TABLETS 14 DAYS ON, 1 WEEK OFF
     Route: 048
     Dates: start: 20131203
  4. FERROUS SULFATE. [Concomitant]
     Active Substance: FERROUS SULFATE

REACTIONS (2)
  - Peripheral swelling [Unknown]
  - Nausea [Unknown]
